FAERS Safety Report 10185260 (Version 1)
Quarter: 2014Q2

REPORT INFORMATION
  Report Type: Report from Study
  Country: EG (occurrence: EG)
  Receive Date: 20140521
  Receipt Date: 20140521
  Transmission Date: 20141212
  Serious: Yes (Death)
  Sender: FDA-Public Use
  Company Number: EG-SA-2014SA062560

PATIENT
  Age: 52 Year
  Sex: Female

DRUGS (1)
  1. LANTUS [Suspect]
     Indication: TYPE 2 DIABETES MELLITUS
     Route: 058
     Dates: start: 20140306, end: 20140501

REACTIONS (1)
  - Coma hepatic [Fatal]
